FAERS Safety Report 24414021 (Version 1)
Quarter: 2024Q4

REPORT INFORMATION
  Report Type: Spontaneous
  Country: US (occurrence: US)
  Receive Date: 20241008
  Receipt Date: 20241008
  Transmission Date: 20250115
  Serious: No
  Sender: RANBAXY
  Company Number: US-SUN PHARMACEUTICAL INDUSTRIES LTD-2024R1-453035

PATIENT
  Sex: Female

DRUGS (3)
  1. CEQUA [Suspect]
     Active Substance: CYCLOSPORINE
     Indication: Dry eye
     Dosage: UNK UNK, BID
     Route: 047
  2. HYDROCORTISONE [Suspect]
     Active Substance: HYDROCORTISONE
     Indication: Pruritus
     Dosage: UNK
     Route: 065
  3. BENADRYL [Suspect]
     Active Substance: DIPHENHYDRAMINE HYDROCHLORIDE
     Indication: Pruritus
     Dosage: UNK
     Route: 065

REACTIONS (3)
  - Pruritus [Unknown]
  - Therapy cessation [Unknown]
  - Drug ineffective [Unknown]
